FAERS Safety Report 11335532 (Version 5)
Quarter: 2018Q1

REPORT INFORMATION
  Report Type: Report from Study
  Country: US (occurrence: US)
  Receive Date: 20150804
  Receipt Date: 20180127
  Transmission Date: 20180508
  Serious: No
  Sender: FDA-Public Use
  Company Number: PHHY2014US159838

PATIENT
  Age: 36 Year
  Sex: Female

DRUGS (7)
  1. XANAX [Concomitant]
     Active Substance: ALPRAZOLAM
     Indication: ANXIETY
  2. GINKGO BILOBA [Concomitant]
     Active Substance: GINKGO
     Indication: PHYTOTHERAPY
     Dosage: UNK
     Route: 065
     Dates: start: 20150120
  3. AMBIEN [Concomitant]
     Active Substance: ZOLPIDEM TARTRATE
     Indication: INSOMNIA
     Route: 065
     Dates: start: 20131031, end: 201505
  4. COQ10 [Concomitant]
     Active Substance: UBIDECARENONE
     Indication: CARDIAC DISORDER
     Dosage: UNK
     Route: 065
     Dates: start: 20150120
  5. NEURONTIN [Concomitant]
     Active Substance: GABAPENTIN
     Indication: PAIN
     Route: 065
     Dates: start: 20140624, end: 201508
  6. XANAX [Concomitant]
     Active Substance: ALPRAZOLAM
     Indication: DEPRESSION
     Route: 065
     Dates: start: 20131031, end: 20151018
  7. GILENYA [Suspect]
     Active Substance: FINGOLIMOD HYDROCHLORIDE
     Indication: MULTIPLE SCLEROSIS
     Dosage: UNK, QD
     Route: 048

REACTIONS (6)
  - Migraine [Recovered/Resolved]
  - Gastroenteritis viral [Unknown]
  - Alopecia [Unknown]
  - Dizziness [Unknown]
  - Ventricular extrasystoles [Recovered/Resolved]
  - Dizziness postural [Recovered/Resolved]

NARRATIVE: CASE EVENT DATE: 20141013
